FAERS Safety Report 5792716-X (Version None)
Quarter: 2008Q2

REPORT INFORMATION
  Report Type: 
  Country: None (occurrence: None)
  Receive Date: 20080624
  Receipt Date: 20080611
  Transmission Date: 20081010
  Serious: Yes (Hospitalization)
  Sender: FDA-Public Use
  Company Number: WAES 0801USA03414

PATIENT
  Age: 55 Year
  Sex: Male
  Weight: 66.2252 kg

DRUGS (5)
  1. TAB MK-0431A 1000MG/50 MG [Suspect]
     Indication: TYPE 2 DIABETES MELLITUS
     Dosage: 1000MG/50 MG/BID/PO
     Route: 048
     Dates: start: 20071227, end: 20080110
  2. TAB PLACEBO (UNSPECIFIED) UNK [Suspect]
     Indication: TYPE 2 DIABETES MELLITUS
     Dosage: PO
     Route: 048
     Dates: start: 20071227, end: 20080110
  3. TYLENOL [Concomitant]
  4. TYLENOL EXTRA STRENGTH HEADACHE [Concomitant]
  5. TYLENOL [Concomitant]

REACTIONS (25)
  - ABDOMINAL PAIN [None]
  - ANOREXIA [None]
  - ARTHRALGIA [None]
  - BLOOD ALKALINE PHOSPHATASE INCREASED [None]
  - BLOOD BILIRUBIN INCREASED [None]
  - BLOOD CHLORIDE DECREASED [None]
  - BLOOD GLUCOSE INCREASED [None]
  - CATHETER SITE RELATED REACTION [None]
  - CONSTIPATION [None]
  - DEHYDRATION [None]
  - DISCOMFORT [None]
  - DYSPEPSIA [None]
  - DYSURIA [None]
  - EMPHYSEMA [None]
  - GLYCOSYLATED HAEMOGLOBIN INCREASED [None]
  - GROIN PAIN [None]
  - HYPOKALAEMIA [None]
  - HYPONATRAEMIA [None]
  - INSOMNIA [None]
  - LIP BLISTER [None]
  - PETECHIAE [None]
  - PNEUMONIA [None]
  - PROTHROMBIN TIME SHORTENED [None]
  - RENAL FAILURE ACUTE [None]
  - WEIGHT DECREASED [None]
